FAERS Safety Report 6643960-0 (Version None)
Quarter: 2010Q1

REPORT INFORMATION
  Report Type: 
  Country: None (occurrence: None)
  Receive Date: 20100317
  Receipt Date: 20100305
  Transmission Date: 20100710
  Serious: No
  Sender: FDA-Public Use
  Company Number: 009049

PATIENT
  Sex: Female

DRUGS (2)
  1. PLETAL [Suspect]
     Dosage: 100 MG, BID ORAL
     Route: 048
     Dates: start: 20100101, end: 20100101
  2. ANALGESICS [Concomitant]

REACTIONS (2)
  - BLINDNESS [None]
  - FAECAL INCONTINENCE [None]
